FAERS Safety Report 9302864 (Version 3)
Quarter: 2014Q2

REPORT INFORMATION
  Report Type: Spontaneous
  Country: US (occurrence: US)
  Receive Date: 20130522
  Receipt Date: 20140620
  Transmission Date: 20141212
  Serious: Yes (Hospitalization, Other)
  Sender: FDA-Public Use
  Company Number: US-BAYER-2013-063348

PATIENT
  Age: 17 Year
  Sex: Female
  Weight: 81.63 kg

DRUGS (8)
  1. YAZ [Suspect]
     Dosage: UNK
     Dates: start: 201104, end: 201205
  2. ZOLOFT [Concomitant]
  3. DOXYCYCLINE [Concomitant]
  4. MULTIVITAMIN [Concomitant]
  5. VITAMIN B2 [Concomitant]
  6. IBUPROFEN [Concomitant]
  7. TRETINOIN [Concomitant]
  8. DILAUDID [Concomitant]

REACTIONS (4)
  - Pulmonary embolism [None]
  - Compartment syndrome [None]
  - Injury [None]
  - Pain [None]
